FAERS Safety Report 11293035 (Version 3)
Quarter: 2015Q3

REPORT INFORMATION
  Report Type: Spontaneous
  Country: US (occurrence: US)
  Receive Date: 20150722
  Receipt Date: 20150820
  Transmission Date: 20151125
  Serious: Yes (Hospitalization, Other)
  Sender: FDA-Public Use
  Company Number: US-AMGEN-USASP2015071081

PATIENT
  Age: 65 Year
  Sex: Male
  Weight: 70.3 kg

DRUGS (1)
  1. BLINCYTO [Suspect]
     Active Substance: BLINATUMOMAB
     Indication: PRODUCT USED FOR UNKNOWN INDICATION
     Dosage: 9 MUG, ONCE
     Route: 041
     Dates: start: 20150713, end: 20150714

REACTIONS (6)
  - Neurotoxicity [Recovering/Resolving]
  - Disease recurrence [Unknown]
  - Coordination abnormal [Recovering/Resolving]
  - Confusional state [Recovered/Resolved]
  - Blast cell count increased [Unknown]
  - Tremor [Unknown]

NARRATIVE: CASE EVENT DATE: 201507
